FAERS Safety Report 7956927-7 (Version None)
Quarter: 2011Q4

REPORT INFORMATION
  Report Type: 
  Country: None (occurrence: None)
  Receive Date: 20111130
  Receipt Date: 20111114
  Transmission Date: 20120403
  Serious: Yes (Hospitalization)
  Sender: FDA-Public Use
  Company Number: TCI2011A04892

PATIENT
  Sex: Male

DRUGS (7)
  1. GLUCOBAY [Concomitant]
  2. METFORMIN HCL [Concomitant]
  3. BASEN (VOGLIBOSE) [Concomitant]
  4. GLYBURIDE [Concomitant]
  5. ACTOS [Suspect]
     Indication: DIABETES MELLITUS
     Dosage: PER ORAL
     Route: 048
     Dates: start: 20071001, end: 20110901
  6. LOSARTAN POTASSIUM [Concomitant]
  7. METFORMIN HYDROCHLORIDE [Concomitant]

REACTIONS (1)
  - BLADDER CANCER [None]
